FAERS Safety Report 7524955-1 (Version None)
Quarter: 2011Q2

REPORT INFORMATION
  Report Type: 
  Country: None (occurrence: None)
  Receive Date: 20110606
  Receipt Date: 20110523
  Transmission Date: 20111010
  Serious: Yes (Other)
  Sender: FDA-Public Use
  Company Number: US-ELI_LILLY_AND_COMPANY-US201105006743

PATIENT
  Age: 47 Year
  Sex: Female
  Weight: 95.7 kg

DRUGS (13)
  1. LEVOTHYROXINE SODIUM [Concomitant]
     Dosage: 88 UG, QD
  2. HYDROCODONE BITARTRATE [Concomitant]
     Dosage: UNK
  3. GLATIRAMER ACETATE [Concomitant]
     Dosage: 40 MG, UNK
  4. NUVIGIL [Concomitant]
     Dosage: 50 MG, QD
  5. FLEXERIL [Concomitant]
     Dosage: 40 MG, QD
  6. TRIAZOLAM [Concomitant]
     Dosage: 0.50 MG, QD
  7. HYDROCODONE BITARTRATE + IBUPROFEN [Concomitant]
     Dosage: UNK
  8. LYRICA [Concomitant]
     Indication: FIBROMYALGIA
     Dosage: 75 MG, BID
     Dates: start: 20080101, end: 20080601
  9. CYMBALTA [Suspect]
     Indication: FIBROMYALGIA
     Dosage: 60 MG, QD
     Route: 048
     Dates: start: 20080101, end: 20080601
  10. CYMBALTA [Suspect]
     Dosage: 60 MG, QD
     Dates: start: 20100101
  11. NEXIUM [Concomitant]
     Dosage: UNK
  12. FUROSEMIDE [Concomitant]
     Dosage: 30 MG, QD
  13. FENTANYL [Concomitant]
     Dosage: 20 MG, QID

REACTIONS (9)
  - DIPLOPIA [None]
  - NERVE COMPRESSION [None]
  - WEIGHT INCREASED [None]
  - EYE PAIN [None]
  - OESOPHAGEAL RUPTURE [None]
  - INTERVERTEBRAL DISC PROTRUSION [None]
  - PAIN [None]
  - BACK DISORDER [None]
  - MULTIPLE SCLEROSIS [None]
